FAERS Safety Report 9891905 (Version 1)
Quarter: 2014Q1

REPORT INFORMATION
  Report Type: Spontaneous
  Country: US (occurrence: US)
  Receive Date: 20140212
  Receipt Date: 20140212
  Transmission Date: 20141002
  Serious: No
  Sender: FDA-Public Use
  Company Number: US-009507513-1402USA003787

PATIENT
  Age: 19 Year
  Sex: Female

DRUGS (1)
  1. NUVARING [Suspect]
     Indication: MENSTRUAL CYCLE MANAGEMENT
     Dosage: CONTINUOUSLY
     Route: 067
     Dates: start: 201311

REACTIONS (3)
  - Metrorrhagia [Unknown]
  - Incorrect drug administration duration [Unknown]
  - Off label use [Unknown]
